FAERS Safety Report 9269437 (Version 1)
Quarter: 2013Q2

REPORT INFORMATION
  Report Type: Spontaneous
  Country: US (occurrence: US)
  Receive Date: 20130503
  Receipt Date: 20130503
  Transmission Date: 20140414
  Serious: No
  Sender: FDA-Public Use
  Company Number: US-BAYER-2013-052925

PATIENT
  Age: 53 Year
  Sex: Female
  Weight: 58.96 kg

DRUGS (7)
  1. BETASERON [Suspect]
     Dosage: 0.25 MG, QOD
     Route: 058
  2. MIRABEGRON [Concomitant]
     Dosage: 50 MG, UNK
  3. LISINOPRIL [Concomitant]
     Dosage: 40 MG, UNK
  4. TERAZOSIN [Concomitant]
     Dosage: 2 MG, UNK
  5. AMPYRA [Concomitant]
     Dosage: 10 MG, UNK
  6. METOPROLOL [Concomitant]
     Dosage: 100 MG, UNK
  7. BACLOFEN [Concomitant]
     Dosage: 20 MG, UNK

REACTIONS (3)
  - Injection site erythema [Unknown]
  - Injection site bruising [Unknown]
  - Injection site induration [Unknown]
